FAERS Safety Report 13878161 (Version 2)
Quarter: 2017Q3

REPORT INFORMATION
  Report Type: Spontaneous
  Country: US (occurrence: US)
  Receive Date: 20170817
  Receipt Date: 20170913
  Transmission Date: 20171127
  Serious: Yes (Other)
  Sender: FDA-Public Use
  Company Number: US-TEVA-798191USA

PATIENT
  Sex: Female

DRUGS (19)
  1. NICOTINE. [Suspect]
     Active Substance: NICOTINE
     Indication: SMOKING CESSATION THERAPY
     Dates: start: 20170805, end: 20170807
  2. DOXYCYCLINE. [Concomitant]
     Active Substance: DOXYCYCLINE
     Dosage: TWICE DAILY FOR DAY 1 THEN 1 OOMG DAILY FOR 5 DAYS
  3. ALBUTEROL HFA [Concomitant]
     Active Substance: ALBUTEROL SULFATE
     Indication: DYSPNOEA
  4. EPINEPHRINE. [Concomitant]
     Active Substance: EPINEPHRINE
     Indication: ANAPHYLACTIC REACTION
     Dosage: AS NEEDED
  5. UTICASONE W/SALMETEROL [Concomitant]
     Dosage: 250-50 MEG/DOSE 1 PUFF 2 (TWO) TIMES A DAY.
  6. PSEUDOEPHEDRINE HCL W/GUAIFENESIN [Concomitant]
     Active Substance: GUAIFENESIN\PSEUDOEPHEDRINE HYDROCHLORIDE
     Dosage: 60-600 MG PER 12 HR TABLET
     Route: 048
  7. FLUTICASONE. [Concomitant]
     Active Substance: FLUTICASONE
     Dosage: 100 MICROGRAM DAILY;
     Route: 045
  8. MELOXICAM. [Concomitant]
     Active Substance: MELOXICAM
     Dosage: 7.5 MILLIGRAM DAILY;
     Route: 048
  9. RANITIDINE. [Concomitant]
     Active Substance: RANITIDINE
     Dosage: 150 MILLIGRAM DAILY;
     Route: 048
  10. VARENICLINE [Concomitant]
     Active Substance: VARENICLINE
  11. BETAMETHASONE CLOTRIMAZOLE [Concomitant]
     Active Substance: BETAMETHASONE DIPROPIONATE\CLOTRIMAZOLE
     Route: 061
  12. LORATADINE. [Concomitant]
     Active Substance: LORATADINE
     Dosage: 10 MILLIGRAM DAILY;
     Route: 048
  13. ALBUTEROL HFA [Concomitant]
     Active Substance: ALBUTEROL SULFATE
     Indication: WHEEZING
     Dosage: INHALE 2 PUFFS EVERY 4 (FOUR) HOURS AS NEEDED
  14. IPRATROPIUM BROMIDE W/ALBUTEROL [Concomitant]
     Indication: WHEEZING
     Dosage: 0.5-2.5 MG/3 ML BY NEBULIZATION AS NEEDED
  15. PREDNISONE. [Concomitant]
     Active Substance: PREDNISONE
     Dosage: 4 (40 MG TOTAL) DAILY. 4/3 DAYS, THEN 3/2 DAYS, 2/2 DAYS, 1 3 DAYS THEN STOP
     Route: 048
  16. OYSTER SHELL CALCIUM WITH VITAMIN D3 [Concomitant]
     Dosage: 500MG (1250MG)-200 UNIT PER TABLET
     Route: 048
  17. PYRIDOXINE [Concomitant]
     Active Substance: PYRIDOXINE
     Dosage: 200 MILLIGRAM DAILY;
     Route: 048
  18. MONTELUKAST [Concomitant]
     Active Substance: MONTELUKAST SODIUM
     Dosage: 10 MILLIGRAM DAILY;
     Route: 048
  19. OMEPRAZOLE. [Concomitant]
     Active Substance: OMEPRAZOLE
     Dosage: 40 MILLIGRAM DAILY;
     Route: 048

REACTIONS (2)
  - Choking [Recovered/Resolved]
  - Cough [Recovered/Resolved]

NARRATIVE: CASE EVENT DATE: 20170812
